FAERS Safety Report 4374975-3 (Version None)
Quarter: 2004Q2

REPORT INFORMATION
  Report Type: 
  Country: None (occurrence: None)
  Receive Date: 20040604
  Receipt Date: 20040527
  Transmission Date: 20050107
  Serious: Yes (Hospitalization)
  Sender: FDA-Public Use
  Company Number: 2004AP02908

PATIENT
  Sex: Female

DRUGS (8)
  1. ARIMIDEX [Suspect]
     Indication: BREAST CANCER
     Dosage: 1 MG DAILY PO
     Route: 048
     Dates: start: 20030504
  2. ARIMIDEX [Suspect]
     Indication: BREAST CANCER
     Dosage: 1 MG DAILY PO
     Route: 048
     Dates: start: 20031001
  3. ARIMIDEX [Suspect]
     Indication: BREAST CANCER
     Dosage: 1 MG DAILY PO
     Route: 048
     Dates: start: 20031212
  4. PANCREATIN [Concomitant]
  5. ALBUMIN (HUMAN) [Concomitant]
  6. ACINON [Concomitant]
  7. MUCOSTA [Concomitant]
  8. URSO [Concomitant]

REACTIONS (1)
  - PANCREATITIS [None]
